FAERS Safety Report 9559669 (Version 2)
Quarter: 2013Q4

REPORT INFORMATION
  Report Type: Report from Study
  Country: US (occurrence: US)
  Receive Date: 20130927
  Receipt Date: 20131015
  Transmission Date: 20140711
  Serious: Yes (Life-Threatening, Hospitalization, Other)
  Sender: FDA-Public Use
  Company Number: US-SHIRE-ALL1-2013-06505

PATIENT
  Age: 20 Year
  Sex: Male
  Weight: 33.1 kg

DRUGS (6)
  1. IDURSULFASE [Suspect]
     Indication: MUCOPOLYSACCHARIDOSIS II
     Dosage: 0.5 MG, 1X/2WKS
     Route: 041
  2. IDURSULFASE [Suspect]
     Dosage: 24 MG, 1X/WEEK (0.73 MG/KG)
     Route: 041
     Dates: start: 20061016
  3. POLYETHYLENE GLYCOL [Concomitant]
     Indication: GASTROINTESTINAL DISORDER
     Dosage: 0.5 (UNK), 1X/DAY:QD
     Route: 048
     Dates: start: 200904
  4. FLUTICASONE PROPIONATE W/SALMETEROL XINAFOATE [Concomitant]
     Indication: RESPIRATORY DISORDER
     Dosage: 2 DF (2 PUFFS), 2X/DAY:BID
     Route: 055
     Dates: start: 2008
  5. DOXYCYCLINE [Concomitant]
     Indication: INFECTION PROPHYLAXIS
     Dosage: 7.5 ML, 2X/DAY:BID
     Route: 048
     Dates: start: 2008
  6. IPRATROPIUM [Concomitant]
     Indication: RESPIRATORY DISORDER
     Dosage: 2 DF (2 PUFFS), 4X/DAY:QID
     Route: 055
     Dates: start: 2000

REACTIONS (2)
  - Stridor [Recovered/Resolved with Sequelae]
  - Hypoxia [Recovered/Resolved with Sequelae]
